FAERS Safety Report 6240405-X (Version None)
Quarter: 2009Q2

REPORT INFORMATION
  Report Type: 
  Country: None (occurrence: None)
  Receive Date: 20090623
  Receipt Date: 20090616
  Transmission Date: 20091009
  Serious: Yes (Hospitalization)
  Sender: FDA-Public Use
  Company Number: US-CELGENEUS-163-21880-09042235

PATIENT
  Sex: Male

DRUGS (14)
  1. REVLIMID [Suspect]
     Route: 048
     Dates: start: 20090211, end: 20090423
  2. CEFEPIME [Concomitant]
     Indication: DRUG USE FOR UNKNOWN INDICATION
     Route: 065
  3. ALLOPURINOL [Concomitant]
     Indication: DRUG USE FOR UNKNOWN INDICATION
     Route: 048
  4. ACYCLOVIR [Concomitant]
     Indication: DRUG USE FOR UNKNOWN INDICATION
     Route: 048
  5. PREDNISOLONE [Concomitant]
     Indication: DRUG USE FOR UNKNOWN INDICATION
     Route: 048
  6. PROTONIX [Concomitant]
     Indication: DRUG USE FOR UNKNOWN INDICATION
     Route: 048
  7. ACETAMINOPHEN [Concomitant]
     Indication: DRUG USE FOR UNKNOWN INDICATION
     Route: 065
  8. LIPITOR [Concomitant]
     Indication: DRUG USE FOR UNKNOWN INDICATION
     Route: 065
  9. MORPHINE [Concomitant]
     Indication: PAIN
     Route: 065
  10. ATIVAN [Concomitant]
     Indication: ANXIETY
     Route: 060
  11. TYLENOL (CAPLET) [Concomitant]
     Indication: PAIN
     Route: 048
  12. TYLENOL (CAPLET) [Concomitant]
  13. FLAGYL [Concomitant]
     Indication: DRUG USE FOR UNKNOWN INDICATION
     Route: 048
  14. IMODIUM [Concomitant]
     Route: 048

REACTIONS (4)
  - CLOSTRIDIUM DIFFICILE COLITIS [None]
  - ESCHERICHIA URINARY TRACT INFECTION [None]
  - STAPHYLOCOCCAL BACTERAEMIA [None]
  - SYNCOPE [None]
